FAERS Safety Report 9392728 (Version 3)
Quarter: 2013Q3

REPORT INFORMATION
  Report Type: Spontaneous
  Country: US (occurrence: US)
  Receive Date: 20130710
  Receipt Date: 20130712
  Transmission Date: 20140515
  Serious: Yes (Death, Hospitalization)
  Sender: FDA-Public Use
  Company Number: US-JNJFOC-20130618878

PATIENT
  Age: 73 Year
  Sex: Male
  Weight: 80 kg

DRUGS (14)
  1. XARELTO [Suspect]
     Indication: CEREBROVASCULAR ACCIDENT PROPHYLAXIS
     Route: 048
  2. XARELTO [Suspect]
     Indication: ATRIAL FIBRILLATION
     Route: 048
  3. ETHYL ALCOHOL [Suspect]
     Indication: PRODUCT USED FOR UNKNOWN INDICATION
     Route: 065
  4. LEXAPRO [Concomitant]
     Route: 065
  5. LEVOTHYROXINE [Concomitant]
     Route: 065
  6. TIKOSYN [Concomitant]
     Route: 065
  7. THIAMINE [Concomitant]
     Route: 065
  8. ALBUTEROL [Concomitant]
     Route: 065
  9. DIGOXIN [Concomitant]
     Route: 065
  10. JANUVIA [Concomitant]
     Route: 065
  11. ALLOPURINOL [Concomitant]
     Route: 065
  12. CARVEDILOL [Concomitant]
     Route: 065
  13. SPIRONOLACTONE [Concomitant]
     Route: 065
  14. MVI [Concomitant]
     Route: 042

REACTIONS (7)
  - Death [Fatal]
  - Subarachnoid haemorrhage [Unknown]
  - Haematoma [Unknown]
  - Fall [Unknown]
  - Urinary tract infection [Unknown]
  - Alcohol withdrawal syndrome [Unknown]
  - Pneumonia [Unknown]
